FAERS Safety Report 13515292 (Version 3)
Quarter: 2017Q3

REPORT INFORMATION
  Report Type: Report from Study
  Country: US (occurrence: US)
  Receive Date: 20170504
  Receipt Date: 20170818
  Transmission Date: 20171127
  Serious: Yes (Hospitalization, Other)
  Sender: FDA-Public Use
  Company Number: PHEH2017US012558

PATIENT
  Sex: Male

DRUGS (3)
  1. LASIX [Concomitant]
     Active Substance: FUROSEMIDE
     Indication: PRODUCT USED FOR UNKNOWN INDICATION
     Route: 065
  2. ENTRESTO [Suspect]
     Active Substance: SACUBITRIL\VALSARTAN
     Indication: PRODUCT USED FOR UNKNOWN INDICATION
     Dosage: 1 DF (49 MG SACUBITRIL AND 51 MG VALSARTAN), BID
     Route: 065
  3. COUMADIN [Concomitant]
     Active Substance: WARFARIN SODIUM
     Indication: PRODUCT USED FOR UNKNOWN INDICATION
     Route: 065

REACTIONS (11)
  - General physical health deterioration [Unknown]
  - Dyspnoea exertional [Unknown]
  - Hypersomnia [Unknown]
  - Dyspnoea [Unknown]
  - Gait disturbance [Unknown]
  - Pollakiuria [Unknown]
  - Somnolence [Unknown]
  - Atrial fibrillation [Unknown]
  - Fatigue [Unknown]
  - Cerebrovascular accident [Unknown]
  - Malaise [Unknown]
